FAERS Safety Report 6167859-1 (Version None)
Quarter: 2009Q2

REPORT INFORMATION
  Report Type: 
  Country: None (occurrence: None)
  Receive Date: 20090427
  Receipt Date: 20090421
  Transmission Date: 20091009
  Serious: Yes (Other)
  Sender: FDA-Public Use
  Company Number: JP-ALLERGAN-0905660US

PATIENT
  Sex: Female

DRUGS (1)
  1. CYCLOSPORINE UNK [Suspect]
     Indication: NECROTISING SCLERITIS
     Dosage: 2 %, QID
     Route: 047

REACTIONS (2)
  - ENDOPHTHALMITIS [None]
  - NECROTISING SCLERITIS [None]
